FAERS Safety Report 9458365 (Version 1)
Quarter: 2013Q3

REPORT INFORMATION
  Report Type: Spontaneous
  Country: BR (occurrence: BR)
  Receive Date: 20130814
  Receipt Date: 20130814
  Transmission Date: 20140515
  Serious: Yes (Other)
  Sender: FDA-Public Use
  Company Number: BR-PFIZER INC-2013231480

PATIENT
  Age: 81 Year
  Sex: Female
  Weight: 70 kg

DRUGS (1)
  1. CELEBRA [Suspect]
     Indication: SPINAL PAIN
     Dosage: 2 CAPSULES (200 MG), PER DAY
     Route: 048
     Dates: start: 2012

REACTIONS (4)
  - Fall [Unknown]
  - Pelvic fracture [Unknown]
  - Dysstasia [Unknown]
  - Pain [Unknown]
